FAERS Safety Report 8405949-0 (Version None)
Quarter: 2012Q2

REPORT INFORMATION
  Report Type: 
  Country: None (occurrence: None)
  Receive Date: 20120529
  Receipt Date: 20010904
  Transmission Date: 20120825
  Serious: Yes (Death)
  Sender: FDA-Public Use
  Company Number: 02100-JPN-01-0076

PATIENT
  Age: 84 Year
  Sex: Male

DRUGS (6)
  1. PLETAL [Suspect]
     Indication: PERIPHERAL COLDNESS
     Dosage: 100 MG, BID, ORAL
     Route: 048
     Dates: start: 20010723, end: 20010805
  2. HALCION (TRIAZOLAM) TABLET, .125 MG UNK TO 08/05/2001 [Concomitant]
  3. DIGOSIN (DIGOXIN) TABLET, .25 MG UNK TO 08/05/2001 [Concomitant]
  4. ASCOMP (ALDIOXA) POWDER (EXCEPT [DPO]) UNK TO 08/05/2001 [Concomitant]
  5. ATELEC (CILNIDIPINE) TABLET, 5 MG UNK TO 08/05/2001 [Concomitant]
  6. BERIZYM (ENZYMES NOS) GRANULE, 1 G GRAM(S) UNK TO 08/05/2001 [Concomitant]

REACTIONS (7)
  - SEPSIS [None]
  - ATRIAL FIBRILLATION [None]
  - DISSEMINATED INTRAVASCULAR COAGULATION [None]
  - INTERSTITIAL LUNG DISEASE [None]
  - DECREASED APPETITE [None]
  - PNEUMONIA BACTERIAL [None]
  - MULTI-ORGAN FAILURE [None]
